FAERS Safety Report 16624924 (Version 1)
Quarter: 2019Q3

REPORT INFORMATION
  Report Type: Spontaneous
  Country: FR (occurrence: FR)
  Receive Date: 20190724
  Receipt Date: 20190724
  Transmission Date: 20191004
  Serious: Yes (Hospitalization)
  Sender: FDA-Public Use
  Company Number: FR-PFIZER INC-2019310004

PATIENT
  Age: 80 Year
  Sex: Male
  Weight: 65 kg

DRUGS (15)
  1. RESIKALI [Concomitant]
     Active Substance: CALCIUM POLYSTYRENE SULFONATE
  2. EFFERALGAN [Concomitant]
     Active Substance: ACETAMINOPHEN
  3. CACIT VITAMINE D3 [Concomitant]
     Active Substance: CALCIUM CARBONATE\CHOLECALCIFEROL
  4. LASILIX [FUROSEMIDE] [Suspect]
     Active Substance: FUROSEMIDE
     Indication: HYPERTENSION
     Dosage: 80 MG, 1X/DAY
     Route: 048
     Dates: end: 20170616
  5. EUPANTOL [Concomitant]
     Active Substance: PANTOPRAZOLE SODIUM
  6. ELISOR [Concomitant]
     Active Substance: PRAVASTATIN SODIUM
  7. XATRAL [ALFUZOSIN HYDROCHLORIDE] [Concomitant]
     Active Substance: ALFUZOSIN
  8. COVERAM [Suspect]
     Active Substance: AMLODIPINE\PERINDOPRIL
     Indication: HYPERTENSION
     Dosage: 1 DF, 1X/DAY
     Route: 048
     Dates: end: 20170622
  9. FUMAFER [Concomitant]
     Active Substance: FERROUS FUMARATE
  10. ULTIBRO BREEZHALER [Concomitant]
     Active Substance: GLYCOPYRRONIUM\INDACATEROL
  11. ADVIL [Suspect]
     Active Substance: IBUPROFEN
     Route: 048
     Dates: start: 201706, end: 201706
  12. CARDENSIEL [Concomitant]
     Active Substance: BISOPROLOL FUMARATE
  13. PERMIXON [Concomitant]
     Active Substance: HERBALS\SAW PALMETTO
  14. ARANESP [Concomitant]
     Active Substance: DARBEPOETIN ALFA
  15. ADENURIC [Concomitant]
     Active Substance: FEBUXOSTAT

REACTIONS (2)
  - Hyperkalaemia [Recovered/Resolved]
  - Acute kidney injury [Recovered/Resolved with Sequelae]

NARRATIVE: CASE EVENT DATE: 20170614
